FAERS Safety Report 5045328-X (Version None)
Quarter: 2006Q3

REPORT INFORMATION
  Report Type: 
  Country: None (occurrence: None)
  Receive Date: 20060707
  Receipt Date: 20030317
  Transmission Date: 20061208
  Serious: No
  Sender: FDA-Public Use
  Company Number: US-GLAXOSMITHKLINE-A0400573A

PATIENT
  Age: 78 Year
  Sex: Male

DRUGS (10)
  1. LOTRONEX [Suspect]
     Indication: IRRITABLE BOWEL SYNDROME
     Dosage: 1MG TWICE PER DAY
     Route: 048
     Dates: start: 20020101
  2. DICYCLOMINE [Concomitant]
  3. FISH OIL [Concomitant]
  4. ASPIRIN [Concomitant]
  5. FIBER [Concomitant]
  6. IMODIUM [Concomitant]
  7. PROBIOTIC [Concomitant]
  8. GRAPEFRUIT SEED EXTRACT [Concomitant]
  9. PEPPERMINT [Concomitant]
  10. FOSAMAX [Concomitant]

REACTIONS (2)
  - DIARRHOEA [None]
  - DRUG INEFFECTIVE [None]
